FAERS Safety Report 16525277 (Version 3)
Quarter: 2019Q3

REPORT INFORMATION
  Report Type: Spontaneous
  Country: JP (occurrence: JP)
  Receive Date: 20190703
  Receipt Date: 20190924
  Transmission Date: 20191004
  Serious: Yes (Hospitalization)
  Sender: FDA-Public Use
  Company Number: JP-EISAI MEDICAL RESEARCH-EC-2019-058415

PATIENT
  Age: 71 Year
  Sex: Male

DRUGS (5)
  1. LENVIMA [Suspect]
     Active Substance: LENVATINIB
     Route: 048
     Dates: start: 20190118, end: 2019
  2. LENVIMA [Suspect]
     Active Substance: LENVATINIB
     Dosage: 8 MG, 5 DAY ON/2 DAY OFF SCHEDULE
     Route: 048
     Dates: start: 20190823
  3. RINDERON [Concomitant]
     Indication: DECREASED APPETITE
  4. RINDERON [Concomitant]
     Indication: MALAISE
     Route: 048
     Dates: start: 20180710
  5. LENVIMA [Suspect]
     Active Substance: LENVATINIB
     Indication: HEPATOCELLULAR CARCINOMA
     Route: 048
     Dates: start: 20180529, end: 20181218

REACTIONS (3)
  - Bronchopulmonary aspergillosis [Recovering/Resolving]
  - Malaise [Recovering/Resolving]
  - Decreased appetite [Recovering/Resolving]

NARRATIVE: CASE EVENT DATE: 20180710
